FAERS Safety Report 12531114 (Version 1)
Quarter: 2016Q3

REPORT INFORMATION
  Report Type: Spontaneous
  Country: US (occurrence: None)
  Receive Date: 20160705
  Receipt Date: 20160705
  Transmission Date: 20161109
  Serious: Yes (Hospitalization)
  Sender: FDA-Public Use
  Company Number: None

PATIENT
  Sex: Female

DRUGS (1)
  1. XALKORI [Suspect]
     Active Substance: CRIZOTINIB
     Indication: LUNG NEOPLASM MALIGNANT
     Route: 048
     Dates: start: 20121220

REACTIONS (4)
  - Drug dose omission [None]
  - Visual impairment [None]
  - Sleep disorder [None]
  - Memory impairment [None]

NARRATIVE: CASE EVENT DATE: 2016
